FAERS Safety Report 6037324-0 (Version None)
Quarter: 2009Q1

REPORT INFORMATION
  Report Type: 
  Country: None (occurrence: None)
  Receive Date: 20090114
  Receipt Date: 20090108
  Transmission Date: 20090719
  Serious: Yes (Hospitalization)
  Sender: FDA-Public Use
  Company Number: PHHY2009JP00899

PATIENT
  Sex: Female

DRUGS (7)
  1. DIOVAN [Suspect]
     Indication: HYPERTENSION
     Dosage: 80 MG, QD
     Route: 048
     Dates: start: 20070920, end: 20080104
  2. SIGMART [Concomitant]
     Indication: HYPERTENSION
     Dosage: 15 MG
     Dates: start: 20070827, end: 20080104
  3. NATRIX [Concomitant]
     Indication: HYPERTENSION
     Dosage: 1 MG
     Dates: start: 20071027, end: 20080104
  4. CYANOCOBALAMIN [Concomitant]
     Dosage: 1500 UG
     Route: 048
     Dates: start: 20070827
  5. SELBEX [Concomitant]
     Dosage: 3 DF
     Route: 048
  6. LOXONIN [Concomitant]
     Dosage: 2 DF
  7. MYONAL [Concomitant]
     Dosage: 2 DF
     Route: 048

REACTIONS (1)
  - CEREBRAL INFARCTION [None]
